FAERS Safety Report 5386104-8 (Version None)
Quarter: 2007Q3

REPORT INFORMATION
  Report Type: 
  Country: None (occurrence: None)
  Receive Date: 20070710
  Receipt Date: 20070628
  Transmission Date: 20080115
  Serious: Yes (Life-Threatening, Hospitalization, Disabling)
  Sender: FDA-Public Use
  Company Number: 100#03#2007-00930

PATIENT
  Age: 39 Year
  Sex: Female

DRUGS (4)
  1. CITALOPRAM HYDROBROMIDE [Suspect]
     Indication: DEPRESSION
     Dosage: 1 DF (1/1DAYS)
  2. SUMATRIPTAN SUCCINATE [Suspect]
     Indication: MIGRAINE
     Dosage: 50 MG (1/1DAYS)/ONCE
     Dates: start: 20070202, end: 20070202
  3. IMODIUM      (LOPERAMIDE HYDROCHLORIDE) (LOPERAMIDE, SIMETHICONE) [Concomitant]
  4. MICROGYNON          (EUGYNON) (ETHINYLESTRADIOL, LEVONORGESTREL) [Concomitant]

REACTIONS (5)
  - ANAPHYLACTIC SHOCK [None]
  - DRUG INTERACTION [None]
  - GASTROENTERITIS [None]
  - PHOTOPHOBIA [None]
  - PYREXIA [None]
